FAERS Safety Report 11043622 (Version 1)
Quarter: 2015Q2

REPORT INFORMATION
  Report Type: Spontaneous
  Country: US (occurrence: None)
  Receive Date: 20150416
  Receipt Date: 20150416
  Transmission Date: 20150821
  Serious: No
  Sender: FDA-Public Use
  Company Number: None

PATIENT
  Age: 53 Year
  Sex: Male
  Weight: 122.47 kg

DRUGS (4)
  1. BRILINTA [Concomitant]
     Active Substance: TICAGRELOR
  2. RANEXA [Suspect]
     Active Substance: RANOLAZINE
     Route: 048
     Dates: start: 20150101, end: 20150125
  3. ASPIRIN. [Concomitant]
     Active Substance: ASPIRIN
  4. RANEXA [Suspect]
     Active Substance: RANOLAZINE
     Indication: THROMBOSIS PROPHYLAXIS
     Route: 048
     Dates: start: 20150101, end: 20150125

REACTIONS (1)
  - Constipation [None]

NARRATIVE: CASE EVENT DATE: 20150115
